FAERS Safety Report 4649144-X (Version None)
Quarter: 2005Q2

REPORT INFORMATION
  Report Type: 
  Country: None (occurrence: None)
  Receive Date: 20050429
  Receipt Date: 20050314
  Transmission Date: 20051028
  Serious: Yes (Hospitalization)
  Sender: FDA-Public Use
  Company Number: DE-GLAXOSMITHKLINE-D0046145A

PATIENT
  Age: 58 Year
  Sex: Female
  Weight: 53 kg

DRUGS (8)
  1. HYCAMTIN [Suspect]
     Dosage: 1.5MGM2 PER DAY
     Route: 042
     Dates: start: 20050221, end: 20050225
  2. KEVATRIL [Concomitant]
     Dosage: 1MG PER DAY
     Route: 065
  3. FORTECORTIN [Concomitant]
     Dosage: 8MG PER DAY
     Route: 065
  4. LYRICA [Concomitant]
     Dosage: 150MG TWICE PER DAY
     Route: 065
  5. NEXUM [Concomitant]
     Dosage: 40MG PER DAY
     Route: 065
  6. MADOPAR [Concomitant]
     Dosage: 125MG PER DAY
     Route: 065
  7. RESTEX [Concomitant]
     Route: 065
  8. DUROGESIC TTS [Concomitant]
     Route: 065

REACTIONS (3)
  - CONFUSIONAL STATE [None]
  - DISORIENTATION [None]
  - GENERAL PHYSICAL HEALTH DETERIORATION [None]
